FAERS Safety Report 13349526 (Version 1)
Quarter: 2017Q1

REPORT INFORMATION
  Report Type: Spontaneous
  Country: US (occurrence: US)
  Receive Date: 20170317
  Receipt Date: 20170317
  Transmission Date: 20170428
  Serious: Yes (Disabling)
  Sender: FDA-Public Use
  Company Number: None

PATIENT
  Age: 48 Year
  Sex: Female
  Weight: 58.5 kg

DRUGS (6)
  1. CYTOMEL [Concomitant]
     Active Substance: LIOTHYRONINE SODIUM
  2. TIROSINT [Concomitant]
     Active Substance: LEVOTHYROXINE SODIUM
  3. MAXALT [Concomitant]
     Active Substance: RIZATRIPTAN BENZOATE
  4. VITA D /00318501/ [Concomitant]
     Active Substance: CHOLECALCIFEROL
  5. GADOLINIUM [Suspect]
     Active Substance: GADOLINIUM
     Indication: NUCLEAR MAGNETIC RESONANCE IMAGING
     Route: 030
  6. MULTI VITAMINS [Concomitant]
     Active Substance: VITAMINS

REACTIONS (9)
  - Skin discolouration [None]
  - Injection site swelling [None]
  - Loss of employment [None]
  - Cognitive disorder [None]
  - Vein disorder [None]
  - Pain [None]
  - Immune system disorder [None]
  - Nervous system disorder [None]
  - Burning sensation [None]

NARRATIVE: CASE EVENT DATE: 20130814
